FAERS Safety Report 6463170-X (Version None)
Quarter: 2009Q4

REPORT INFORMATION
  Report Type: 
  Country: None (occurrence: None)
  Receive Date: 20091123
  Receipt Date: 20091109
  Transmission Date: 20100525
  Serious: Yes (Death, Hospitalization)
  Sender: FDA-Public Use
  Company Number: 2009AC000374

PATIENT
  Age: 43 Year
  Sex: Female

DRUGS (5)
  1. DIGOXIN [Suspect]
     Dosage: 0.25 MG; PO
     Route: 048
     Dates: end: 20080426
  2. MOL-ITRON [Concomitant]
  3. THERAGRAN M [Concomitant]
  4. TYLOX [Concomitant]
  5. TYLENOL W/ CODEINE NO. 3 [Concomitant]

REACTIONS (8)
  - ABDOMINAL PAIN UPPER [None]
  - BONE GRAFT [None]
  - DIARRHOEA [None]
  - INTERVERTEBRAL DISC DEGENERATION [None]
  - SHOULDER OPERATION [None]
  - SPINAL OSTEOARTHRITIS [None]
  - SUDDEN CARDIAC DEATH [None]
  - THERAPEUTIC AGENT TOXICITY [None]
